FAERS Safety Report 18438110 (Version 5)
Quarter: 2021Q4

REPORT INFORMATION
  Report Type: Spontaneous
  Country: None (occurrence: US)
  Receive Date: 20201029
  Receipt Date: 20211124
  Transmission Date: 20220303
  Serious: No
  Sender: FDA-Public Use
  Company Number: US-AKCEA THERAPEUTICS-2020IS001472

PATIENT
  Age: 69 Year
  Sex: Male

DRUGS (2)
  1. TEGSEDI [Suspect]
     Active Substance: INOTERSEN SODIUM
     Indication: Hereditary neuropathic amyloidosis
     Route: 058
     Dates: start: 20200508
  2. DEVICE [Suspect]
     Active Substance: DEVICE

REACTIONS (9)
  - Urinary occult blood positive [Unknown]
  - Crystal urine present [Unknown]
  - Urine protein/creatinine ratio abnormal [Unknown]
  - Urine ketone body present [Unknown]
  - Blood creatinine abnormal [Unknown]
  - Urine abnormality [Unknown]
  - Protein urine present [Unknown]
  - Urine leukocyte esterase positive [Unknown]
  - Urinary casts [Unknown]

NARRATIVE: CASE EVENT DATE: 20210823
